FAERS Safety Report 19468105 (Version 1)
Quarter: 2021Q2

REPORT INFORMATION
  Report Type: Report from Study
  Country: BR (occurrence: BR)
  Receive Date: 20210628
  Receipt Date: 20210628
  Transmission Date: 20210717
  Serious: Yes (Hospitalization)
  Sender: FDA-Public Use
  Company Number: NVSC2020BR081406

PATIENT
  Age: 57 Year
  Sex: Male
  Weight: 75 kg

DRUGS (8)
  1. PREDNISONE. [Concomitant]
     Active Substance: PREDNISONE
     Dosage: UNK UNK, QD (BIGGER THAN 3)
     Route: 065
  2. VOTRIENT [Suspect]
     Active Substance: PAZOPANIB HYDROCHLORIDE
     Indication: CLEAR CELL RENAL CELL CARCINOMA
     Dosage: 2 DF, QD
     Route: 065
     Dates: start: 20200220
  3. VOTRIENT [Suspect]
     Active Substance: PAZOPANIB HYDROCHLORIDE
     Dosage: 400 MG, Q12H
     Route: 048
  4. HYDROCHLOROTHIAZIDE. [Concomitant]
     Active Substance: HYDROCHLOROTHIAZIDE
     Indication: HORMONE THERAPY
     Dosage: 1 MG
     Route: 065
  5. ROSUVASTATIN. [Suspect]
     Active Substance: ROSUVASTATIN
     Indication: BLOOD CHOLESTEROL
     Dosage: 10 MG
     Route: 065
  6. FLUORINEF [Concomitant]
     Active Substance: FLUDROCORTISONE
     Indication: HORMONE THERAPY
     Dosage: 1 MG
     Route: 065
  7. VOTRIENT [Suspect]
     Active Substance: PAZOPANIB HYDROCHLORIDE
     Dosage: UNK
     Route: 065
     Dates: start: 20200222
  8. PREDNISONE. [Concomitant]
     Active Substance: PREDNISONE
     Indication: HORMONE THERAPY
     Dosage: 3 DF, QD
     Route: 065

REACTIONS (27)
  - Cough [Recovering/Resolving]
  - Dysgeusia [Recovered/Resolved]
  - Visual impairment [Unknown]
  - Abdominal discomfort [Unknown]
  - Dysphonia [Unknown]
  - COVID-19 [Not Recovered/Not Resolved]
  - Vomiting [Recovered/Resolved]
  - Ageusia [Recovered/Resolved]
  - Diarrhoea [Unknown]
  - Headache [Unknown]
  - Hair colour changes [Recovered/Resolved]
  - Hair colour changes [Unknown]
  - Eye pain [Recovered/Resolved]
  - Hair colour changes [Not Recovered/Not Resolved]
  - Fatigue [Recovered/Resolved]
  - Skin discolouration [Recovering/Resolving]
  - Skin lesion [Unknown]
  - Sluggishness [Recovering/Resolving]
  - Toothache [Recovered/Resolved]
  - Gingival swelling [Recovered/Resolved]
  - Hormone level abnormal [Unknown]
  - Hair colour changes [Recovering/Resolving]
  - Inappropriate schedule of product administration [Not Recovered/Not Resolved]
  - Gait disturbance [Recovering/Resolving]
  - Feeding disorder [Unknown]
  - Weight decreased [Not Recovered/Not Resolved]
  - Skin disorder [Unknown]

NARRATIVE: CASE EVENT DATE: 20210611
